FAERS Safety Report 10160872 (Version 1)
Quarter: 2014Q2

REPORT INFORMATION
  Report Type: Spontaneous
  Country: US (occurrence: None)
  Receive Date: 20140507
  Receipt Date: 20140507
  Transmission Date: 20141212
  Serious: No
  Sender: FDA-Public Use
  Company Number: None

PATIENT
  Age: 49 Year
  Sex: Male

DRUGS (1)
  1. ENBREL [Suspect]
     Indication: PRODUCT USED FOR UNKNOWN INDICATION
     Dosage: 50 MG Q WEEK SQ
     Route: 058
     Dates: start: 201311

REACTIONS (4)
  - Pain [None]
  - Headache [None]
  - Feeling of body temperature change [None]
  - Influenza like illness [None]
